FAERS Safety Report 23424025 (Version 1)
Quarter: 2024Q1

REPORT INFORMATION
  Report Type: Spontaneous
  Country: US (occurrence: US)
  Receive Date: 20240120
  Receipt Date: 20240120
  Transmission Date: 20240410
  Serious: No
  Sender: FDA-Public Use
  Company Number: US-AUROBINDO-AUR-APL-2023-061370

PATIENT
  Age: 21 Year
  Sex: Female
  Weight: 170 kg

DRUGS (1)
  1. LEVONORGESTREL [Suspect]
     Active Substance: LEVONORGESTREL
     Indication: Sexually active
     Dosage: 1 DOSAGE FORM (MORNING)
     Route: 065
     Dates: start: 20230925, end: 20230925

REACTIONS (2)
  - Self-medication [Unknown]
  - Expired product administered [Unknown]

NARRATIVE: CASE EVENT DATE: 20230925
